FAERS Safety Report 7225993-9 (Version None)
Quarter: 2011Q1

REPORT INFORMATION
  Report Type: 
  Country: None (occurrence: None)
  Receive Date: 20110113
  Receipt Date: 20110112
  Transmission Date: 20110831
  Serious: Yes (Other)
  Sender: FDA-Public Use
  Company Number: ES-ABBOTT-11P-144-0696778-00

PATIENT
  Age: 40 Year
  Sex: Male

DRUGS (3)
  1. NORVIR [Suspect]
     Indication: HIV INFECTION
     Route: 048
     Dates: start: 20100427, end: 20101116
  2. TRUVADA [Suspect]
     Indication: HIV INFECTION
     Dosage: 200MG/245 MG
     Route: 048
     Dates: start: 20100427
  3. REYATAZ [Suspect]
     Indication: HIV INFECTION
     Route: 048
     Dates: start: 20100427, end: 20101116

REACTIONS (2)
  - HEPATOTOXICITY [None]
  - HYPERBILIRUBINAEMIA [None]
